FAERS Safety Report 5504180-6 (Version None)
Quarter: 2007Q4

REPORT INFORMATION
  Report Type: 
  Country: None (occurrence: None)
  Receive Date: 20071030
  Receipt Date: 20071018
  Transmission Date: 20080405
  Serious: Yes (Other)
  Sender: FDA-Public Use
  Company Number: ALA_00023_2007

PATIENT

DRUGS (1)
  1. ANADROL [Suspect]
     Indication: CONGENITAL DYSKERATOSIS
     Dosage: (2 MG/KG QD ORAL)
     Route: 048
     Dates: start: 20070101, end: 20070101

REACTIONS (2)
  - HEPATIC ENZYME INCREASED [None]
  - HEPATOTOXICITY [None]
